FAERS Safety Report 19512825 (Version 2)
Quarter: 2021Q3

REPORT INFORMATION
  Report Type: Spontaneous
  Country: US (occurrence: US)
  Receive Date: 20210709
  Receipt Date: 20210806
  Transmission Date: 20211014
  Serious: No
  Sender: FDA-Public Use
  Company Number: US-ASTRAZENECA-2021A551076

PATIENT
  Sex: Female

DRUGS (1)
  1. BUDESONIDE AND FORMOTEROL AEROSOL [Suspect]
     Active Substance: BUDESONIDE\FORMOTEROL FUMARATE DIHYDRATE
     Indication: ASTHMA
     Dosage: 160 MCG/4.5 MCG 2 PUFFS TWO TIMES A DAY
     Route: 055

REACTIONS (3)
  - Off label use [Unknown]
  - Device malfunction [Unknown]
  - Ill-defined disorder [Unknown]
